FAERS Safety Report 9122541 (Version 1)
Quarter: 2013Q1

REPORT INFORMATION
  Report Type: Spontaneous
  Country: US (occurrence: None)
  Receive Date: 20130131
  Receipt Date: 20130131
  Transmission Date: 20140127
  Serious: Yes (Death)
  Sender: FDA-Public Use
  Company Number: JPI-P-029236

PATIENT
  Age: 72 Year
  Sex: Female

DRUGS (1)
  1. XYREM (500 MILLIGRAM/MILLILITERS, SOLUTION) (SODIUM OXYBATE) [Suspect]
     Indication: CATAPLEXY
     Dosage: 4.5 GM  (2.5 GM, 2 IN 1 D), ORAL?10/31/2002  -
     Route: 048
     Dates: start: 20021031

REACTIONS (13)
  - Spinal fracture [None]
  - Rib fracture [None]
  - Fall [None]
  - Cataplexy [None]
  - Contusion [None]
  - Urinary tract infection [None]
  - Balance disorder [None]
  - Pain [None]
  - Breast cancer [None]
  - Renal injury [None]
  - Haemorrhoids [None]
  - Gingival swelling [None]
  - Tooth infection [None]
